FAERS Safety Report 9020721 (Version 1)
Quarter: 2013Q1

REPORT INFORMATION
  Report Type: Spontaneous
  Country: US (occurrence: US)
  Receive Date: 20130119
  Receipt Date: 20130119
  Transmission Date: 20140127
  Serious: No
  Sender: FDA-Public Use
  Company Number: US-ALLERGAN-1205824US

PATIENT
  Age: 59 Year
  Sex: Male

DRUGS (4)
  1. BOTOX? [Suspect]
     Indication: PARAPARESIS
     Dosage: UNK
     Route: 030
     Dates: start: 20120320, end: 20120320
  2. GLUCOPHAGE                         /00082701/ [Concomitant]
     Indication: DIABETES MELLITUS
     Dosage: UNK
     Route: 048
  3. NOVOLOG [Concomitant]
     Indication: DIABETES MELLITUS
     Dosage: UNK
     Route: 058
  4. C-PAP [Concomitant]
     Indication: SLEEP APNOEA SYNDROME
     Dosage: UNK

REACTIONS (5)
  - Neck pain [Unknown]
  - Dysphagia [Unknown]
  - Heart rate irregular [Unknown]
  - Oesophageal spasm [Unknown]
  - Chest pain [Not Recovered/Not Resolved]
